FAERS Safety Report 5325825-X (Version None)
Quarter: 2007Q3

REPORT INFORMATION
  Report Type: 
  Country: None (occurrence: None)
  Receive Date: 20070510
  Receipt Date: 20070424
  Transmission Date: 20080115
  Serious: Yes (Hospitalization)
  Sender: FDA-Public Use
  Company Number: 2007-01189

PATIENT
  Age: 66 Year

DRUGS (8)
  1. VELCADE [Suspect]
     Indication: MULTIPLE MYELOMA
  2. ADRIAMYCIN PFS [Suspect]
     Indication: MULTIPLE MYELOMA
  3. DEXAMETHASONE [Suspect]
     Indication: MULTIPLE MYELOMA
  4. MELPHALAN [Suspect]
     Indication: MULTIPLE MYELOMA
  5. NORVASC [Concomitant]
  6. NEURONTIN [Concomitant]
  7. PALLADONE [Concomitant]
  8. ACYCLOVIR [Concomitant]

REACTIONS (2)
  - GASTRITIS EROSIVE [None]
  - GENERAL PHYSICAL HEALTH DETERIORATION [None]
